FAERS Safety Report 6664882-5 (Version None)
Quarter: 2010Q2

REPORT INFORMATION
  Report Type: 
  Country: None (occurrence: None)
  Receive Date: 20100402
  Receipt Date: 20100324
  Transmission Date: 20101027
  Serious: Yes (Hospitalization)
  Sender: FDA-Public Use
  Company Number: 202864

PATIENT
  Age: 63 Year
  Sex: Female
  Weight: 46 kg

DRUGS (8)
  1. AVONEX [Suspect]
     Indication: MULTIPLE SCLEROSIS
     Route: 030
     Dates: start: 19990910, end: 20040101
  2. AVONEX [Suspect]
     Route: 030
     Dates: start: 20040101
  3. CLONAZEPAM [Concomitant]
     Indication: RESTLESS LEGS SYNDROME
  4. PAXIL [Concomitant]
     Indication: ANXIETY
     Dates: start: 20040401
  5. PREMPRO [Concomitant]
     Indication: HORMONE REPLACEMENT THERAPY
     Dates: start: 20040701
  6. HORMONE REPLACEMENT (NOS) [Concomitant]
     Indication: HORMONE REPLACEMENT THERAPY
     Dates: end: 20040701
  7. VITAMIN TAB [Concomitant]
     Indication: MEDICAL DIET
  8. GRAPE SEED EXTRACT [Concomitant]
     Indication: MEDICAL DIET

REACTIONS (18)
  - ARTHRALGIA [None]
  - BONE PAIN [None]
  - BREAST CANCER IN SITU [None]
  - CYSTITIS [None]
  - FALL [None]
  - FATIGUE [None]
  - FIBROCYSTIC BREAST DISEASE [None]
  - FUNGAL INFECTION [None]
  - GAIT DISTURBANCE [None]
  - HOT FLUSH [None]
  - HYPERAESTHESIA [None]
  - HYPOTHYROIDISM [None]
  - INCONTINENCE [None]
  - INFLUENZA LIKE ILLNESS [None]
  - MEMORY IMPAIRMENT [None]
  - OSTEOPENIA [None]
  - OSTEOPOROSIS [None]
  - PROGRESSIVE MULTIPLE SCLEROSIS [None]
